FAERS Safety Report 12704417 (Version 1)
Quarter: 2016Q3

REPORT INFORMATION
  Report Type: Spontaneous
  Country: US (occurrence: US)
  Receive Date: 20160831
  Receipt Date: 20160831
  Transmission Date: 20161109
  Serious: Yes (Other)
  Sender: FDA-Public Use
  Company Number: US-BAUSCH-BL-2016-020544

PATIENT
  Age: 67 Year
  Sex: Female

DRUGS (4)
  1. XIFAXAN [Suspect]
     Active Substance: RIFAXIMIN
     Indication: PAIN
     Route: 048
     Dates: start: 2008
  2. XIFAXAN [Suspect]
     Active Substance: RIFAXIMIN
     Indication: HAEMATOCHEZIA
     Route: 048
     Dates: start: 2015
  3. XIFAXAN [Suspect]
     Active Substance: RIFAXIMIN
     Indication: COLITIS
  4. CODEINE [Concomitant]
     Active Substance: CODEINE
     Indication: CONSTIPATION
     Route: 048

REACTIONS (6)
  - Anorectal discomfort [Unknown]
  - Treatment noncompliance [Unknown]
  - Pouchitis [Unknown]
  - Off label use [Unknown]
  - Inflammatory bowel disease [Unknown]
  - Diarrhoea [Unknown]
